FAERS Safety Report 24323460 (Version 1)
Quarter: 2024Q3

REPORT INFORMATION
  Report Type: Spontaneous
  Country: US (occurrence: US)
  Receive Date: 20240916
  Receipt Date: 20240916
  Transmission Date: 20241016
  Serious: No
  Sender: SANOFI AVENTIS
  Company Number: US-SA-2024SA265749

PATIENT
  Age: 57 Year
  Sex: Female

DRUGS (12)
  1. DUPIXENT [Suspect]
     Active Substance: DUPILUMAB
     Indication: Dermatitis allergic
     Dosage: 300 MG
     Route: 058
     Dates: start: 20211220
  2. NALTREXONE [Concomitant]
     Active Substance: NALTREXONE
  3. GABAPENTIN [Concomitant]
     Active Substance: GABAPENTIN
  4. REPATHA [Concomitant]
     Active Substance: EVOLOCUMAB
  5. TYLENOL [Concomitant]
     Active Substance: ACETAMINOPHEN
  6. ADVIL [Concomitant]
     Active Substance: IBUPROFEN\IBUPROFEN SODIUM
  7. BETAMETHASONE [Concomitant]
     Active Substance: BETAMETHASONE
  8. CLOBETASOL [Concomitant]
     Active Substance: CLOBETASOL
  9. TACROLIMUS [Concomitant]
     Active Substance: TACROLIMUS
  10. TRIAMCINOLONE [Concomitant]
     Active Substance: TRIAMCINOLONE
  11. ZADITOR [Concomitant]
     Active Substance: KETOTIFEN FUMARATE
  12. SYNTHROID [Concomitant]
     Active Substance: LEVOTHYROXINE SODIUM

REACTIONS (1)
  - COVID-19 [Unknown]
